FAERS Safety Report 4531680-8 (Version None)
Quarter: 2004Q4

REPORT INFORMATION
  Report Type: 
  Country: None (occurrence: None)
  Receive Date: 20041216
  Receipt Date: 20041203
  Transmission Date: 20050328
  Serious: Yes (Other)
  Sender: FDA-Public Use
  Company Number: 2004104058

PATIENT
  Sex: Female
  Weight: 79.3795 kg

DRUGS (1)
  1. CELEBREX [Suspect]
     Indication: ARTHRITIS
     Dosage: 200 MG (200 MG, 1 IN 1 D)

REACTIONS (5)
  - ALOPECIA [None]
  - DIFFICULTY IN WALKING [None]
  - PAIN [None]
  - RENAL CELL CARCINOMA STAGE UNSPECIFIED [None]
  - URINARY INCONTINENCE [None]
